FAERS Safety Report 6202499-7 (Version None)
Quarter: 2009Q2

REPORT INFORMATION
  Report Type: 
  Country: None (occurrence: None)
  Receive Date: 20090526
  Receipt Date: 20080527
  Transmission Date: 20091009
  Serious: No
  Sender: FDA-Public Use
  Company Number: A0729958A

PATIENT
  Sex: Female

DRUGS (1)
  1. LANOXICAPS [Suspect]
     Indication: CARDIOMYOPATHY
     Route: 048

REACTIONS (1)
  - DIARRHOEA [None]
